FAERS Safety Report 6110429-1 (Version None)
Quarter: 2009Q1

REPORT INFORMATION
  Report Type: 
  Country: None (occurrence: None)
  Receive Date: 20090310
  Receipt Date: 20090302
  Transmission Date: 20090719
  Serious: Yes (Life-Threatening, Hospitalization)
  Sender: FDA-Public Use
  Company Number: JP-WYE-H08464509

PATIENT
  Sex: Female
  Weight: 40 kg

DRUGS (6)
  1. ANCARON [Suspect]
     Indication: VENTRICULAR TACHYCARDIA
     Dosage: 17 ML/HR
     Route: 042
     Dates: start: 20081020, end: 20081025
  2. ANCARON [Suspect]
     Dosage: 15 ML/HR
     Route: 042
     Dates: start: 20081025, end: 20081025
  3. ANCARON [Suspect]
     Dosage: 12 ML/HR
     Route: 042
     Dates: start: 20081025, end: 20081026
  4. SHINBIT [Concomitant]
     Indication: VENTRICULAR TACHYCARDIA
     Dosage: 300 MG; FREQUENCY NOT PROVIDED
     Route: 042
     Dates: start: 20081018, end: 20081020
  5. INOVAN [Concomitant]
     Indication: VENTRICULAR TACHYCARDIA
     Dosage: 75 MG; FREQUENCY NOT PROVIDED
     Route: 042
     Dates: start: 20081018, end: 20081020
  6. ANCARON [Concomitant]
     Dosage: 100 MG, FREQUENCY NOT PROVIDED
     Route: 048
     Dates: start: 20080922, end: 20081018

REACTIONS (7)
  - ALANINE AMINOTRANSFERASE INCREASED [None]
  - ASPARTATE AMINOTRANSFERASE INCREASED [None]
  - BILIRUBIN CONJUGATED INCREASED [None]
  - BLOOD BILIRUBIN INCREASED [None]
  - C-REACTIVE PROTEIN INCREASED [None]
  - GAMMA-GLUTAMYLTRANSFERASE INCREASED [None]
  - WHITE BLOOD CELL COUNT INCREASED [None]
